FAERS Safety Report 19764650 (Version 1)
Quarter: 2021Q3

REPORT INFORMATION
  Report Type: Spontaneous
  Country: GB (occurrence: GB)
  Receive Date: 20210830
  Receipt Date: 20210830
  Transmission Date: 20211014
  Serious: Yes (Disabling)
  Sender: FDA-Public Use
  Company Number: GB-TEVA-2021-GB-1946001

PATIENT

DRUGS (5)
  1. LANSOPRAZOLE. [Concomitant]
     Active Substance: LANSOPRAZOLE
  2. PERINDOPRIL [Concomitant]
     Active Substance: PERINDOPRIL
  3. BICALUTAMIDE. [Suspect]
     Active Substance: BICALUTAMIDE
     Route: 065
  4. BISOPROLOL [Concomitant]
     Active Substance: BISOPROLOL
  5. TRIPTORELIN [Concomitant]
     Active Substance: TRIPTORELIN

REACTIONS (7)
  - Abdominal pain [Unknown]
  - Fatigue [Unknown]
  - Abnormal dreams [Unknown]
  - Insomnia [Unknown]
  - Muscle atrophy [Unknown]
  - Constipation [Unknown]
  - Weight decreased [Unknown]
